FAERS Safety Report 16112379 (Version 4)
Quarter: 2019Q2

REPORT INFORMATION
  Report Type: Report from Study
  Country: US (occurrence: US)
  Receive Date: 20190325
  Receipt Date: 20190417
  Transmission Date: 20190711
  Serious: Yes (Hospitalization, Other)
  Sender: FDA-Public Use
  Company Number: US-ALEXION PHARMACEUTICALS INC.-A201904380

PATIENT
  Sex: Female

DRUGS (1)
  1. SOLIRIS [Suspect]
     Active Substance: ECULIZUMAB
     Indication: ATYPICAL HAEMOLYTIC URAEMIC SYNDROME
     Dosage: UNK, QW
     Route: 042
     Dates: start: 20190221

REACTIONS (9)
  - Haemoglobin decreased [Unknown]
  - Vomiting [Unknown]
  - Pain in extremity [Unknown]
  - Nausea [Unknown]
  - Epistaxis [Unknown]
  - Diarrhoea [Unknown]
  - Back pain [Unknown]
  - Dyspnoea exertional [Unknown]
  - Laboratory test abnormal [Unknown]

NARRATIVE: CASE EVENT DATE: 20190221
